FAERS Safety Report 7318910-4 (Version None)
Quarter: 2011Q1

REPORT INFORMATION
  Report Type: 
  Country: None (occurrence: None)
  Receive Date: 20110228
  Receipt Date: 20110215
  Transmission Date: 20110831
  Serious: Yes (Hospitalization)
  Sender: FDA-Public Use
  Company Number: US-ELI_LILLY_AND_COMPANY-US201012000538

PATIENT
  Sex: Female

DRUGS (17)
  1. NASONEX [Concomitant]
     Dosage: UNK, AS NEEDED
     Route: 065
  2. SOOTHE XP [Concomitant]
     Dosage: UNK, AS NEEDED
     Route: 065
  3. METFORMIN [Concomitant]
     Dosage: 500 MG, 2/D
     Route: 065
  4. VERAPAMIL [Concomitant]
     Dosage: 80 MG, DAILY (1/D)
     Route: 065
  5. ALAWAY [Concomitant]
     Dosage: UNK, AS NEEDED
     Route: 065
  6. ADVAIR DISKUS 100/50 [Concomitant]
     Dosage: 250/50 UNK, 2/D
     Route: 065
  7. LEVOCETIRIZINE DIHYDROCHLORIDE [Concomitant]
     Indication: HYPERSENSITIVITY
     Dosage: 5 MG, DAILY (1/D)
     Route: 065
  8. LIPITOR [Concomitant]
     Dosage: 10 MG, DAILY (1/D)
     Route: 065
  9. PANTOPRAZOLE [Concomitant]
     Dosage: 40 MG, DAILY (1/D)
     Route: 065
  10. VITAMIN B-12 [Concomitant]
     Dosage: UNK, MONTHLY (1/M)
     Route: 065
  11. PROVENTIL /USA/ [Concomitant]
     Dosage: UNK, AS NEEDED
     Route: 065
  12. ASPIRIN [Concomitant]
     Dosage: 325 UNK, DAILY (1/D)
     Route: 065
  13. NITROGLYCERIN [Concomitant]
     Dosage: 4 MG, AS NEEDED
     Route: 065
  14. BENZONATATE [Concomitant]
     Dosage: 100 MG, AS NEEDED
     Route: 065
  15. FORTEO [Suspect]
     Indication: OSTEOPOROSIS
     Dosage: 20 UG, DAILY (1/D)
     Route: 065
     Dates: start: 20101101
  16. FUROSEMIDE [Concomitant]
     Dosage: 40 MG, DAILY (1/D)
     Route: 065
  17. KLOR-CON M [Concomitant]
     Dosage: 10 UNK, 2/D
     Route: 065

REACTIONS (5)
  - MALAISE [None]
  - HEART VALVE INCOMPETENCE [None]
  - DIABETES MELLITUS [None]
  - MUSCLE SPASMS [None]
  - BRONCHITIS CHRONIC [None]
